FAERS Safety Report 5206604-0 (Version None)
Quarter: 2006Q4

REPORT INFORMATION
  Report Type: 
  Country: None (occurrence: None)
  Receive Date: 20061026
  Receipt Date: 20060714
  Transmission Date: 20070319
  Serious: No
  Sender: FDA-Public Use
  Company Number: 2006089873

PATIENT
  Sex: Female

DRUGS (1)
  1. PREGABALIN (PREGABALIN) [Suspect]
     Indication: DRUG USE FOR UNKNOWN INDICATION

REACTIONS (2)
  - VAGINAL DISORDER [None]
  - VAGINAL SWELLING [None]
